FAERS Safety Report 10643245 (Version 1)
Quarter: 2014Q4

REPORT INFORMATION
  Report Type: Spontaneous
  Country: US (occurrence: None)
  Receive Date: 20141121
  Receipt Date: 20141121
  Transmission Date: 20150529
  Serious: No
  Sender: FDA-Public Use
  Company Number: 163-10004-14064255

PATIENT
  Sex: Female

DRUGS (1)
  1. OTEZLA [Suspect]
     Active Substance: APREMILAST
     Indication: PSORIATIC ARTHROPATHY
     Dosage: STARTED PACK, NOT PROVIDED, PO
     Route: 048
     Dates: start: 20140608, end: 20140620

REACTIONS (7)
  - Headache [None]
  - Crying [None]
  - Abdominal pain [None]
  - Diarrhoea [None]
  - Joint swelling [None]
  - Arthralgia [None]
  - Nausea [None]

NARRATIVE: CASE EVENT DATE: 201406
